FAERS Safety Report 25113790 (Version 1)
Quarter: 2025Q1

REPORT INFORMATION
  Report Type: Spontaneous
  Country: US (occurrence: US)
  Receive Date: 20250324
  Receipt Date: 20250324
  Transmission Date: 20250408
  Serious: No
  Sender: AMARIN
  Company Number: US-Amarin Pharma  Inc-2025AMR000133

PATIENT
  Age: 87 Year
  Sex: Female

DRUGS (1)
  1. VASCEPA [Suspect]
     Active Substance: ICOSAPENT ETHYL
     Indication: Product used for unknown indication
     Dates: start: 202409

REACTIONS (6)
  - Visual impairment [Unknown]
  - Bradykinesia [Unknown]
  - Poor quality product administered [Unknown]
  - Product use complaint [Unknown]
  - Product physical issue [Unknown]
  - Product taste abnormal [Unknown]
